FAERS Safety Report 6150392-0 (Version None)
Quarter: 2009Q2

REPORT INFORMATION
  Report Type: 
  Country: None (occurrence: None)
  Receive Date: 20090409
  Receipt Date: 20090401
  Transmission Date: 20091009
  Serious: Yes (Other)
  Sender: FDA-Public Use
  Company Number: US-GENENTECH-279691

PATIENT
  Sex: Female

DRUGS (4)
  1. XOLAIR [Suspect]
     Indication: URTICARIA
     Dosage: 300 MG, UNK
     Route: 058
     Dates: start: 20090312, end: 20090312
  2. GUAIFENESIN [Concomitant]
     Indication: UNEVALUABLE EVENT
     Dosage: 600 MG, BID
     Dates: start: 20090226, end: 20090313
  3. MIRENA [Concomitant]
     Indication: CONTRACEPTION
     Dosage: 52 G, UNK
     Dates: start: 20090219
  4. ANTIHISTAMINES (UNK INGREDIENTS) [Concomitant]
     Indication: DRUG USE FOR UNKNOWN INDICATION

REACTIONS (2)
  - FACE OEDEMA [None]
  - SWOLLEN TONGUE [None]
